FAERS Safety Report 6829405-6 (Version None)
Quarter: 2010Q3

REPORT INFORMATION
  Report Type: 
  Country: None (occurrence: None)
  Receive Date: 20100709
  Receipt Date: 20070302
  Transmission Date: 20110219
  Serious: No
  Sender: FDA-Public Use
  Company Number: US-PFIZER INC-2007017532

PATIENT
  Sex: Female
  Weight: 73.03 kg

DRUGS (3)
  1. CHANTIX [Suspect]
     Indication: SMOKING CESSATION THERAPY
     Dates: start: 20070218
  2. FEMARA [Concomitant]
     Indication: BREAST CANCER
  3. LOPRESSOR [Concomitant]
     Indication: HYPERTENSION

REACTIONS (4)
  - ABDOMINAL DISTENSION [None]
  - CONSTIPATION [None]
  - MIDDLE INSOMNIA [None]
  - WEIGHT INCREASED [None]
